FAERS Safety Report 21423907 (Version 2)
Quarter: 2022Q4

REPORT INFORMATION
  Report Type: Report from Study
  Country: US (occurrence: US)
  Receive Date: 20221007
  Receipt Date: 20221115
  Transmission Date: 20230113
  Serious: Yes (Life-Threatening, Hospitalization, Other)
  Sender: FDA-Public Use
  Company Number: US-TAKEDA-2022TUS071979

PATIENT
  Sex: Male
  Weight: 34.2 kg

DRUGS (17)
  1. TEDUGLUTIDE [Suspect]
     Active Substance: TEDUGLUTIDE
     Indication: Short-bowel syndrome
     Dosage: UNK
     Route: 042
  2. TEDUGLUTIDE [Suspect]
     Active Substance: TEDUGLUTIDE
     Indication: Short-bowel syndrome
     Dosage: UNK
     Route: 042
  3. TEDUGLUTIDE [Suspect]
     Active Substance: TEDUGLUTIDE
     Indication: Short-bowel syndrome
     Dosage: UNK
     Route: 042
  4. TEDUGLUTIDE [Suspect]
     Active Substance: TEDUGLUTIDE
     Indication: Short-bowel syndrome
     Dosage: UNK
     Route: 042
  5. URSODIOL [Concomitant]
     Active Substance: URSODIOL
     Indication: Cholelithiasis
     Dosage: 2.50 MILLILITER, BID
     Dates: start: 20160715, end: 20160913
  6. CEFDINIR [Concomitant]
     Active Substance: CEFDINIR
     Indication: Pharyngitis
     Dosage: 4.60 MILLILITER, QID
     Route: 048
     Dates: start: 20151027, end: 20151031
  7. HYDROCHLORIC ACID [Concomitant]
     Active Substance: HYDROCHLORIC ACID
     Indication: Product used for unknown indication
     Dosage: 1 MILLIGRAM, SINGLE
     Route: 050
     Dates: start: 20170607, end: 20170607
  8. ALTEPLASE [Concomitant]
     Active Substance: ALTEPLASE
     Dosage: 1 MILLIGRAM, SINGLE
     Route: 050
     Dates: start: 20170607, end: 20170607
  9. POLYETHYLENE GLYCOL [Concomitant]
     Active Substance: POLYETHYLENE GLYCOL
     Indication: Constipation
     Dosage: UNK
     Route: 048
     Dates: start: 20151027, end: 20210112
  10. SODIUM PHOSPHATE [Concomitant]
     Active Substance: SODIUM PHOSPHATE
     Indication: Faecaloma
     Dosage: UNK UNK, QD
     Route: 054
     Dates: start: 20200606, end: 20200607
  11. MAGNESIUM CITRATE [Concomitant]
     Active Substance: MAGNESIUM CITRATE
     Indication: Faecaloma
     Dosage: 100 MILLILITER
     Route: 050
     Dates: start: 20200609, end: 20200609
  12. MAGNESIUM CITRATE [Concomitant]
     Active Substance: MAGNESIUM CITRATE
     Dosage: 100 MILLILITER, SINGLE
     Route: 050
     Dates: start: 20200610, end: 20200610
  13. MAGNESIUM CITRATE [Concomitant]
     Active Substance: MAGNESIUM CITRATE
     Dosage: 75 MILLILITER, TID
     Route: 050
     Dates: start: 20200611
  14. GLYCERIN [Concomitant]
     Active Substance: GLYCERIN
     Indication: Faecaloma
     Dosage: UNK UNK, SINGLE
     Route: 054
     Dates: start: 20200612, end: 20200612
  15. LACTULOSE [Concomitant]
     Active Substance: LACTULOSE
     Dosage: 7.5 MILLILITER, BID
     Route: 048
     Dates: start: 20200614, end: 20210112
  16. SENNA [Concomitant]
     Active Substance: SENNA LEAF\SENNOSIDES\SENNOSIDES A AND B
     Indication: Laxative supportive care
     Dosage: 8.6 MILLILITER, BID
     Route: 048
     Dates: start: 20200614
  17. FLAGYL [Concomitant]
     Active Substance: METRONIDAZOLE\METRONIDAZOLE HYDROCHLORIDE
     Indication: Prophylaxis
     Dosage: 5 MILLILITER, TID
     Route: 048
     Dates: start: 20210818

REACTIONS (1)
  - Gastric ulcer [Recovered/Resolved]

NARRATIVE: CASE EVENT DATE: 20220101
